FAERS Safety Report 8133902-3 (Version None)
Quarter: 2012Q1

REPORT INFORMATION
  Report Type: 
  Country: None (occurrence: None)
  Receive Date: 20120213
  Receipt Date: 20120203
  Transmission Date: 20120608
  Serious: Yes (Hospitalization)
  Sender: FDA-Public Use
  Company Number: US-ASTRAZENECA-2011SE01951

PATIENT
  Age: 53 Year
  Sex: Female
  Weight: 56.2 kg

DRUGS (8)
  1. SEROQUEL [Suspect]
     Indication: DEPRESSION
     Route: 048
  2. SEROQUEL [Suspect]
     Indication: PSYCHOTIC DISORDER
     Route: 048
  3. ALBUTEROL [Concomitant]
  4. IPRATROPIUM BROMIDE [Concomitant]
     Indication: CHRONIC OBSTRUCTIVE PULMONARY DISEASE
  5. SEROQUEL [Suspect]
     Route: 048
  6. SEROQUEL [Suspect]
     Route: 048
  7. LEXAPRO [Concomitant]
     Indication: DEPRESSION
  8. LIPITOR [Concomitant]

REACTIONS (6)
  - CONDITION AGGRAVATED [None]
  - PSYCHOTIC DISORDER [None]
  - IMPAIRED DRIVING ABILITY [None]
  - DRUG DOSE OMISSION [None]
  - DEPRESSION [None]
  - ABDOMINAL DISCOMFORT [None]
